FAERS Safety Report 7150582 (Version 3)
Quarter: 2015Q4

REPORT INFORMATION
  Report Type: Report from Study
  Country: US (occurrence: US)
  Receive Date: 20091016
  Receipt Date: 20151026
  Transmission Date: 20160305
  Serious: No
  Sender: FDA-Public Use
  Company Number: PHEH2009US12440

PATIENT
  Age: 75 Year
  Sex: Female
  Weight: 67.5 kg

DRUGS (9)
  1. INSULIN [Suspect]
     Active Substance: INSULIN NOS
     Indication: PRODUCT USED FOR UNKNOWN INDICATION
     Route: 065
  2. EXJADE [Suspect]
     Active Substance: DEFERASIROX
     Dosage: UNK
     Route: 065
     Dates: start: 201202, end: 201303
  3. EXJADE [Suspect]
     Active Substance: DEFERASIROX
     Dosage: 2 DF, PER DAY
     Route: 065
  4. CELEBREX [Concomitant]
     Active Substance: CELECOXIB
     Indication: ARTHRALGIA
     Dosage: 200 MG, BID
     Route: 048
  5. PROCRIT [Concomitant]
     Active Substance: ERYTHROPOIETIN
     Indication: ANAEMIA
     Dosage: 40000  U/WK, UNK
     Route: 058
  6. EXJADE [Suspect]
     Active Substance: DEFERASIROX
     Indication: MYELODYSPLASTIC SYNDROME
     Dosage: 1500 MG, DAILY AT BEDTIME
     Route: 048
     Dates: start: 200904
  7. EXJADE [Suspect]
     Active Substance: DEFERASIROX
     Dosage: 1500 MG, QD
     Route: 048
     Dates: start: 20091022, end: 201005
  8. EXJADE [Suspect]
     Active Substance: DEFERASIROX
     Dosage: UNK
     Route: 065
  9. PREDNISONE. [Concomitant]
     Active Substance: PREDNISONE
     Indication: RHEUMATOID ARTHRITIS
     Dosage: 10 MG, QD
     Route: 048

REACTIONS (12)
  - Liver function test abnormal [Recovered/Resolved]
  - Nephrolithiasis [Unknown]
  - Renal impairment [Unknown]
  - Hypoglycaemia [Unknown]
  - Kidney infection [Recovered/Resolved]
  - Blood creatinine increased [Recovered/Resolved]
  - Blood creatinine increased [Unknown]
  - Liver function test abnormal [Recovered/Resolved]
  - Renal disorder [Unknown]
  - Blood creatinine increased [Recovered/Resolved]
  - Joint swelling [Unknown]
  - Blood urea increased [Recovered/Resolved]

NARRATIVE: CASE EVENT DATE: 200909
